FAERS Safety Report 13023676 (Version 1)
Quarter: 2016Q4

REPORT INFORMATION
  Report Type: Spontaneous
  Country: US (occurrence: US)
  Receive Date: 20161213
  Receipt Date: 20161213
  Transmission Date: 20170207
  Serious: Yes (Other)
  Sender: FDA-Public Use
  Company Number: US-LPDUSPRD-20160336

PATIENT
  Sex: Female

DRUGS (2)
  1. COQ10 [Concomitant]
     Active Substance: UBIDECARENONE
     Dosage: DOSE UNKNOWN
     Route: 065
  2. VENOFER [Suspect]
     Active Substance: IRON SUCROSE
     Dosage: 100 MG (5ML)
     Route: 042
     Dates: start: 20160414

REACTIONS (11)
  - Nausea [Not Recovered/Not Resolved]
  - Fatigue [Unknown]
  - Orthopnoea [Unknown]
  - Thirst [Unknown]
  - Off label use [Unknown]
  - Hypersensitivity [Unknown]
  - Tachycardia [Unknown]
  - Dyspnoea [Unknown]
  - Abdominal pain [Recovered/Resolved]
  - Oropharyngeal pain [Unknown]
  - Cough [Not Recovered/Not Resolved]

NARRATIVE: CASE EVENT DATE: 20160414
